FAERS Safety Report 4978417-6 (Version None)
Quarter: 2006Q2

REPORT INFORMATION
  Report Type: 
  Country: None (occurrence: None)
  Receive Date: 20060417
  Receipt Date: 20060329
  Transmission Date: 20061013
  Serious: Yes (Life-Threatening, Other)
  Sender: FDA-Public Use
  Company Number: DSA_27629_2006

PATIENT
  Age: 58 Year
  Sex: Female

DRUGS (5)
  1. ENALAPRIL MALEATE [Suspect]
     Indication: HYPERTENSION
     Dosage: 20 MG Q DAY PO
     Route: 048
     Dates: start: 20050527
  2. MESULID [Suspect]
     Indication: OSTEOARTHRITIS
     Dosage: DF PO
     Route: 048
  3. CALCIUM CHANNEL BLOCKER [Suspect]
     Indication: HYPERTENSION
     Dosage: DF PO
     Route: 048
     Dates: start: 20051128
  4. AMILORIDE HYDROCHLORIDE [Concomitant]
  5. TENOXICAM [Concomitant]

REACTIONS (2)
  - CARDIAC FAILURE [None]
  - PERIPHERAL VASCULAR DISORDER [None]
